FAERS Safety Report 4829378-1 (Version None)
Quarter: 2005Q4

REPORT INFORMATION
  Report Type: 
  Country: None (occurrence: None)
  Receive Date: 20051028
  Receipt Date: 20050314
  Transmission Date: 20060501
  Serious: No
  Sender: FDA-Public Use
  Company Number: US114782

PATIENT
  Age: 76 Year
  Sex: Male
  Weight: 85 kg

DRUGS (15)
  1. SENSIPAR [Suspect]
     Indication: HYPERPARATHYROIDISM SECONDARY
     Dosage: 30 MG, 1 IN 1 DAYS, PO
     Route: 048
     Dates: start: 20050121
  2. IRON [Concomitant]
  3. FEXOFENADINE HYDROCHLORIDE [Concomitant]
  4. OS-CAL [Concomitant]
  5. ACETYLSALICYLIC ACID [Concomitant]
  6. CARVEDILOL [Concomitant]
  7. LOSARTAN POTASSIUM [Concomitant]
  8. TRIAMCINOLONE ACETONIDE [Concomitant]
  9. GUAIFENESIN [Concomitant]
  10. FLUTICASONE PROPIONATE [Concomitant]
  11. IPRATROPIUM BROMIDE/ALBUTEROL SULFATE [Concomitant]
  12. ATORVASTATIN CALCIUM [Concomitant]
  13. AMIODARONE HYDROCHLORIDE [Concomitant]
  14. NEPHRO-VITE [Concomitant]
  15. TRAMADOL HYDROCHLORIDE [Concomitant]

REACTIONS (3)
  - NAUSEA [None]
  - VOMITING [None]
  - WEIGHT DECREASED [None]
